FAERS Safety Report 25861869 (Version 2)
Quarter: 2025Q4

REPORT INFORMATION
  Report Type: Spontaneous
  Country: US (occurrence: US)
  Receive Date: 20250930
  Receipt Date: 20251028
  Transmission Date: 20260118
  Serious: No
  Sender: ROCHE
  Company Number: US-ROCHE-10000254041

PATIENT
  Sex: Male

DRUGS (1)
  1. XOLAIR [Suspect]
     Active Substance: OMALIZUMAB
     Indication: Milk allergy
     Dosage: FORM STRENGTH: 150MG/ML
     Route: 058
     Dates: start: 202408

REACTIONS (1)
  - Hypersensitivity [Unknown]
